FAERS Safety Report 24723963 (Version 2)
Quarter: 2024Q4

REPORT INFORMATION
  Report Type: Spontaneous
  Country: JP (occurrence: JP)
  Receive Date: 20241211
  Receipt Date: 20241227
  Transmission Date: 20250115
  Serious: Yes (Other)
  Sender: APELLIS PHARMACEUTICALS
  Company Number: JP-BIOVITRUM-2024-JP-008057

PATIENT

DRUGS (1)
  1. EMPAVELI [Suspect]
     Active Substance: PEGCETACOPLAN
     Indication: Paroxysmal nocturnal haemoglobinuria
     Dosage: 1080.000MG, TWICE/WEEK
     Route: 058
     Dates: start: 20240514

REACTIONS (13)
  - Pulmonary oedema [Unknown]
  - Ascites [Recovering/Resolving]
  - Platelet count decreased [Unknown]
  - Dizziness [Recovered/Resolved]
  - Administration site swelling [Recovered/Resolved]
  - Headache [Unknown]
  - Administration site pain [Recovered/Resolved]
  - Abdominal rigidity [Not Recovered/Not Resolved]
  - Flatulence [Unknown]
  - Faecaloma [Unknown]
  - Injection site haemorrhage [Unknown]
  - Oedema peripheral [Not Recovered/Not Resolved]
  - Malaise [Unknown]

NARRATIVE: CASE EVENT DATE: 20240901
